FAERS Safety Report 6759719-X (Version None)
Quarter: 2010Q2

REPORT INFORMATION
  Report Type: 
  Country: None (occurrence: None)
  Receive Date: 20100604
  Receipt Date: 20100521
  Transmission Date: 20101027
  Serious: Yes (Other)
  Sender: FDA-Public Use
  Company Number: 2010SP029607

PATIENT
  Age: 56 Year
  Sex: Male

DRUGS (2)
  1. REMERON [Suspect]
     Indication: DEPRESSION
     Dosage: 25 MG  PO
     Route: 048
  2. ALPRAZOLAM [Concomitant]

REACTIONS (1)
  - EXTRASYSTOLES [None]
